FAERS Safety Report 4794986-3 (Version None)
Quarter: 2005Q4

REPORT INFORMATION
  Report Type: 
  Country: None (occurrence: None)
  Receive Date: 20051007
  Receipt Date: 20051007
  Transmission Date: 20060501
  Serious: Yes (Life-Threatening, Hospitalization)
  Sender: FDA-Public Use
  Company Number: None

PATIENT
  Sex: Female
  Weight: 95.2554 kg

DRUGS (6)
  1. NOVANTRONE [Suspect]
     Indication: MULTIPLE SCLEROSIS
     Dosage: 12 MG/M2 Q 3 MONTHS
     Dates: start: 20020725, end: 20030609
  2. BACLOFEN [Concomitant]
  3. COPAXONE [Concomitant]
  4. NEURONTIN [Concomitant]
  5. AMANTADINE [Concomitant]
  6. DETROL [Concomitant]

REACTIONS (1)
  - ACUTE MYELOID LEUKAEMIA [None]
